FAERS Safety Report 6096876-5 (Version None)
Quarter: 2009Q1

REPORT INFORMATION
  Report Type: 
  Country: None (occurrence: None)
  Receive Date: 20090225
  Receipt Date: 20090225
  Transmission Date: 20090719
  Serious: No
  Sender: FDA-Public Use
  Company Number: None

PATIENT
  Sex: Male
  Weight: 79.3795 kg

DRUGS (2)
  1. LEVAQUIN [Suspect]
     Indication: PREOPERATIVE CARE
     Dosage: 500MG ONCE PO
     Route: 048
     Dates: start: 20090203
  2. LEVAQUIN [Suspect]
     Indication: PROPHYLAXIS
     Dosage: 500MG ONCE PO
     Route: 048
     Dates: start: 20090203

REACTIONS (2)
  - INFUSION RELATED REACTION [None]
  - INJECTION SITE ERYTHEMA [None]
